FAERS Safety Report 24657702 (Version 1)
Quarter: 2024Q4

REPORT INFORMATION
  Report Type: Spontaneous
  Country: JP (occurrence: JP)
  Receive Date: 20241125
  Receipt Date: 20241125
  Transmission Date: 20250115
  Serious: Yes (Life-Threatening, Hospitalization, Other)
  Sender: JUBILANT
  Company Number: None

PATIENT
  Age: 33 Year
  Sex: Male
  Weight: 30 kg

DRUGS (6)
  1. LEVETIRACETAM [Interacting]
     Active Substance: LEVETIRACETAM
     Indication: Status epilepticus
     Dosage: 1800 MG, 2 TIMES PER DAY, PRESCRIBED FOR OVER 10 YEARS AS HIS DAILY ANTIEPILEPTIC MEDICATION
     Route: 065
  2. ROCURONIUM [Interacting]
     Active Substance: ROCURONIUM BROMIDE
     Indication: Induction of anaesthesia
     Dosage: 20 MG, BOLUSES (0.66 MG/KG)
     Route: 065
  3. DIAZEPAM [Concomitant]
     Active Substance: DIAZEPAM
     Indication: Status epilepticus
     Dosage: 10 MG
     Route: 065
  4. OXYGEN [Concomitant]
     Active Substance: OXYGEN
     Indication: Oxygen therapy
     Dosage: 6 L, PER MINUTE
     Route: 065
  5. SEVOFLURANE [Concomitant]
     Active Substance: SEVOFLURANE
     Indication: Induction of anaesthesia
     Dosage: UNK, SLOW MASK INDUCTION
     Route: 065
  6. FENTANYL [Concomitant]
     Active Substance: FENTANYL
     Indication: Induction of anaesthesia
     Dosage: 50 ?G, BOLUSES
     Route: 065

REACTIONS (4)
  - Paralysis [Recovered/Resolved]
  - Neuromuscular block prolonged [Recovered/Resolved]
  - Drug interaction [Recovered/Resolved]
  - Drug resistance [Recovered/Resolved]
